FAERS Safety Report 7311910-X (Version None)
Quarter: 2011Q1

REPORT INFORMATION
  Report Type: 
  Country: None (occurrence: None)
  Receive Date: 20110215
  Receipt Date: 20110215
  Transmission Date: 20110831
  Serious: Yes (Life-Threatening, Other)
  Sender: FDA-Public Use
  Company Number: None

PATIENT
  Sex: Female
  Weight: 68.0396 kg

DRUGS (2)
  1. METOPROLOL TARTRATE [Suspect]
     Indication: INFECTION
     Dosage: 25 1 X DAY ORAL
     Route: 048
     Dates: start: 20081110, end: 20101227
  2. METOPROLOL TARTRATE [Suspect]
     Indication: NEOPLASM MALIGNANT
     Dosage: 25 1 X DAY ORAL
     Route: 048
     Dates: start: 20081110, end: 20101227

REACTIONS (9)
  - INSOMNIA [None]
  - PERIPHERAL COLDNESS [None]
  - HEART RATE IRREGULAR [None]
  - WEIGHT INCREASED [None]
  - CONSTIPATION [None]
  - DYSURIA [None]
  - ANXIETY [None]
  - DIZZINESS [None]
  - FATIGUE [None]
